FAERS Safety Report 6258816-5 (Version None)
Quarter: 2009Q3

REPORT INFORMATION
  Report Type: 
  Country: None (occurrence: None)
  Receive Date: 20090707
  Receipt Date: 20090626
  Transmission Date: 20100115
  Serious: Yes (Other)
  Sender: FDA-Public Use
  Company Number: SE-BAXTER-2009BH010282

PATIENT
  Age: 71 Year
  Sex: Male

DRUGS (2)
  1. ENDOXAN BAXTER [Suspect]
     Indication: CHRONIC LYMPHOCYTIC LEUKAEMIA
     Route: 048
     Dates: start: 20070416, end: 20070713
  2. FLUDARA [Concomitant]
     Indication: CHRONIC LYMPHOCYTIC LEUKAEMIA
     Route: 048
     Dates: start: 20070416, end: 20070713

REACTIONS (6)
  - COUGH [None]
  - HAEMOLYTIC ANAEMIA [None]
  - PULMONARY FIBROSIS [None]
  - PYREXIA [None]
  - RASH [None]
  - VASCULITIS [None]
